FAERS Safety Report 23570858 (Version 2)
Quarter: 2024Q1

REPORT INFORMATION
  Report Type: Report from Study
  Country: JP (occurrence: None)
  Receive Date: 20240227
  Receipt Date: 20240318
  Transmission Date: 20240410
  Serious: Yes (Death)
  Sender: FDA-Public Use
  Company Number: 2024A044742

PATIENT
  Age: 91 Year
  Sex: Female
  Weight: 53 kg

DRUGS (17)
  1. EVUSHELD [Suspect]
     Active Substance: CILGAVIMAB\TIXAGEVIMAB
     Indication: COVID-19 prophylaxis
     Dosage: TIXAGEVIMAB AT 300 MG AND CILGAVIMAB AT 300 MG
     Route: 030
     Dates: start: 20230724, end: 20230724
  2. EDOXABAN TOSYLATE [Concomitant]
     Active Substance: EDOXABAN TOSYLATE
     Indication: Atrial fibrillation
     Dosage: DOSE UNKNOWN
     Route: 048
  3. CIFENLINE [Concomitant]
     Active Substance: CIFENLINE
     Indication: Atrial fibrillation
     Dosage: DOSE UNKNOWN
     Route: 048
  4. MAGNESIUM OXIDE [Concomitant]
     Active Substance: MAGNESIUM OXIDE
     Indication: Constipation
     Dosage: DOSE UNKNOWN
     Route: 048
  5. PRAVASTATIN SODIUM [Concomitant]
     Active Substance: PRAVASTATIN SODIUM
     Indication: Dyslipidaemia
     Dosage: DOSE UNKNOWN
     Route: 048
  6. SENNOSIDES [Concomitant]
     Active Substance: SENNOSIDES
     Indication: Constipation
     Dosage: DOSE UNKNOWN
     Route: 048
  7. TELMISARTAN [Concomitant]
     Active Substance: TELMISARTAN
     Indication: Essential hypertension
     Dosage: DOSE UNKNOWN
     Route: 048
  8. SULFAMETHOXAZOLE\TRIMETHOPRIM [Concomitant]
     Active Substance: SULFAMETHOXAZOLE\TRIMETHOPRIM
     Indication: Prophylaxis
     Dosage: DOSE UNKNOWN
     Route: 048
  9. SINGULAIR [Concomitant]
     Active Substance: MONTELUKAST SODIUM
     Indication: Asthma
     Dosage: DOSE UNKNOWN
     Route: 048
  10. ACYCLOVIR [Concomitant]
     Active Substance: ACYCLOVIR
     Indication: Prophylaxis
     Dosage: DOSE UNKNOWN
     Route: 048
  11. LANSOPRAZOLE [Concomitant]
     Active Substance: LANSOPRAZOLE
     Indication: Gastrooesophageal reflux disease
     Dosage: DOSE UNKNOWN
     Route: 048
  12. PREDONINE [Concomitant]
     Active Substance: PREDNISOLONE
     Indication: B-cell lymphoma
     Dosage: DOSE UNKNOWN
     Route: 048
     Dates: end: 20231104
  13. PIRARUBICIN HYDROCHLORIDE [Concomitant]
     Active Substance: PIRARUBICIN HYDROCHLORIDE
     Indication: B-cell lymphoma
     Dosage: DOSE UNKNOWN
     Route: 065
     Dates: end: 20231031
  14. VINCRISTINE SULFATE [Concomitant]
     Active Substance: VINCRISTINE SULFATE
     Indication: B-cell lymphoma
     Dosage: DOSE UNKNOWN
     Route: 065
     Dates: end: 20231031
  15. CYCLOPHOSPHAMIDE [Concomitant]
     Active Substance: CYCLOPHOSPHAMIDE
     Indication: B-cell lymphoma
     Dosage: DOSE UNKNOWN
     Route: 065
     Dates: end: 20231031
  16. GRANISETRON [Concomitant]
     Active Substance: GRANISETRON
     Indication: Prophylaxis
     Dosage: DOSE UNKNOWN
     Route: 065
     Dates: end: 20231031
  17. PEGFILGRASTIM [Concomitant]
     Active Substance: PEGFILGRASTIM
     Indication: Prophylaxis
     Dosage: DOSE UNKNOWN
     Route: 065
     Dates: end: 20231101

REACTIONS (1)
  - B-cell lymphoma [Fatal]

NARRATIVE: CASE EVENT DATE: 20240210
